FAERS Safety Report 11792977 (Version 1)
Quarter: 2015Q4

REPORT INFORMATION
  Report Type: Spontaneous
  Country: US (occurrence: None)
  Receive Date: 20151130
  Receipt Date: 20151130
  Transmission Date: 20160305
  Serious: Yes (Hospitalization)
  Sender: FDA-Public Use
  Company Number: 2015US-106499

PATIENT
  Age: 19 Year
  Sex: Male

DRUGS (4)
  1. TOPIRAMATE. [Concomitant]
     Active Substance: TOPIRAMATE
  2. OXCARBAZEPINE (OXCARBAZEPINE) UNKNOWN [Suspect]
     Active Substance: OXCARBAZEPINE
     Indication: EPILEPSY
  3. METFORMIN [Concomitant]
     Active Substance: METFORMIN HYDROCHLORIDE
  4. LEVOTHYROXINE. [Concomitant]
     Active Substance: LEVOTHYROXINE

REACTIONS (4)
  - Pleural effusion [None]
  - Systemic lupus erythematosus [None]
  - Lymphopenia [None]
  - Seizure [None]
